FAERS Safety Report 11055123 (Version 1)
Quarter: 2015Q2

REPORT INFORMATION
  Report Type: Spontaneous
  Country: US (occurrence: US)
  Receive Date: 20150422
  Receipt Date: 20150422
  Transmission Date: 20150821
  Serious: Yes (Other)
  Sender: FDA-Public Use
  Company Number: US-SA-2014SA142355

PATIENT
  Age: 69 Year
  Sex: Male

DRUGS (2)
  1. LOVENOX [Suspect]
     Active Substance: ENOXAPARIN SODIUM
     Indication: THROMBOSIS
     Dosage: DOSE: 60 MG IN THE MORNING AND 80 MG IN THE EVENING
     Route: 065
     Dates: start: 1999
  2. ZONEGRAN [Concomitant]
     Active Substance: ZONISAMIDE

REACTIONS (1)
  - Thrombosis [Recovered/Resolved]
